FAERS Safety Report 11860143 (Version 1)
Quarter: 2015Q4

REPORT INFORMATION
  Report Type: Spontaneous
  Country: RU (occurrence: RU)
  Receive Date: 20151222
  Receipt Date: 20151222
  Transmission Date: 20160305
  Serious: Yes (Other)
  Sender: FDA-Public Use
  Company Number: RU-BAYER-2015-487568

PATIENT
  Age: 30 Year
  Sex: Female

DRUGS (1)
  1. YARINA [Suspect]
     Active Substance: DROSPIRENONE\ETHINYL ESTRADIOL
     Dosage: UNK
     Dates: start: 2009

REACTIONS (4)
  - Blood insulin increased [None]
  - Hypopituitarism [None]
  - Weight increased [None]
  - Osteochondrosis [None]

NARRATIVE: CASE EVENT DATE: 2015
